FAERS Safety Report 6036732-1 (Version None)
Quarter: 2009Q1

REPORT INFORMATION
  Report Type: 
  Country: None (occurrence: None)
  Receive Date: 20090114
  Receipt Date: 20090105
  Transmission Date: 20090719
  Serious: Yes (Other)
  Sender: FDA-Public Use
  Company Number: GB-PFIZER INC-2008099249

PATIENT

DRUGS (3)
  1. ETHOSUXIMIDE [Suspect]
  2. KEPPRA [Concomitant]
  3. PHENYTOIN [Concomitant]

REACTIONS (3)
  - CONDITION AGGRAVATED [None]
  - PARANOIA [None]
  - SLEEP TERROR [None]
